FAERS Safety Report 8272024-8 (Version None)
Quarter: 2012Q2

REPORT INFORMATION
  Report Type: 
  Country: None (occurrence: None)
  Receive Date: 20120410
  Receipt Date: 20120330
  Transmission Date: 20120825
  Serious: Yes (Other)
  Sender: FDA-Public Use
  Company Number: CA-JNJFOC-20120400567

PATIENT
  Sex: Male
  Weight: 111 kg

DRUGS (7)
  1. REMICADE [Suspect]
     Indication: COLITIS ULCERATIVE
     Route: 042
     Dates: start: 20081002
  2. LAXATIVES [Concomitant]
     Route: 065
  3. SYMBICORT [Concomitant]
     Route: 065
  4. VITAMIN D [Concomitant]
     Route: 065
  5. ANTIHYPERTENSIVE [Concomitant]
     Route: 065
  6. LIPITOR [Concomitant]
     Route: 065
  7. METFORMIN HCL [Concomitant]
     Route: 065

REACTIONS (12)
  - CHILLS [None]
  - DIABETES MELLITUS INADEQUATE CONTROL [None]
  - EXFOLIATIVE RASH [None]
  - COLITIS ULCERATIVE [None]
  - PRURITUS [None]
  - MALAISE [None]
  - HEADACHE [None]
  - INSOMNIA [None]
  - ARTHRITIS [None]
  - SINUS CONGESTION [None]
  - FATIGUE [None]
  - SKIN BURNING SENSATION [None]
